FAERS Safety Report 8992174 (Version 2)
Quarter: 2015Q2

REPORT INFORMATION
  Report Type: Report from Study
  Country: CA (occurrence: CA)
  Receive Date: 20121231
  Receipt Date: 20150603
  Transmission Date: 20150821
  Serious: Yes (Other)
  Sender: FDA-Public Use
  Company Number: CA-ROCHE-1173662

PATIENT
  Age: 53 Year
  Sex: Female

DRUGS (2)
  1. OMALIZUMAB [Suspect]
     Active Substance: OMALIZUMAB
     Indication: ASTHMA
     Route: 058
     Dates: start: 20070612
  2. ATROVENT [Concomitant]
     Active Substance: IPRATROPIUM BROMIDE
     Indication: PRODUCT USED FOR UNKNOWN INDICATION

REACTIONS (22)
  - Stress [Unknown]
  - Asthma [Unknown]
  - Headache [Unknown]
  - Ocular hyperaemia [Unknown]
  - Blood pressure decreased [Unknown]
  - Dyspnoea exertional [Unknown]
  - Dyspnoea [Unknown]
  - Heart rate increased [Unknown]
  - Nasal congestion [Unknown]
  - Dysphonia [Unknown]
  - Influenza [Unknown]
  - Fatigue [Unknown]
  - Rales [Unknown]
  - Bronchitis [Unknown]
  - Lung disorder [Unknown]
  - Myalgia [Unknown]
  - Limb discomfort [Unknown]
  - Sinusitis [Unknown]
  - Pneumonia [Unknown]
  - Rhinorrhoea [Unknown]
  - Sinus congestion [Unknown]
  - Hypersensitivity [Unknown]

NARRATIVE: CASE EVENT DATE: 201204
